FAERS Safety Report 9602974 (Version 1)
Quarter: 2013Q4

REPORT INFORMATION
  Report Type: Spontaneous
  Country: FR (occurrence: FR)
  Receive Date: 20131007
  Receipt Date: 20131007
  Transmission Date: 20140711
  Serious: Yes (Hospitalization)
  Sender: FDA-Public Use
  Company Number: FR-PFIZER INC-2013280391

PATIENT
  Age: 52 Year
  Sex: Male

DRUGS (3)
  1. TYGACIL [Suspect]
     Indication: PNEUMONIA BACTERIAL
     Dosage: 50 MG, 2X/DAY
     Route: 041
     Dates: start: 20130716, end: 20130719
  2. DORIBAX [Concomitant]
     Indication: PNEUMONIA BACTERIAL
     Dosage: UNK
     Dates: start: 20130716
  3. AMIKLIN [Concomitant]
     Indication: PNEUMONIA BACTERIAL
     Dosage: UNK
     Dates: start: 20130716

REACTIONS (1)
  - Sinus bradycardia [Recovered/Resolved]
